FAERS Safety Report 14133941 (Version 5)
Quarter: 2023Q4

REPORT INFORMATION
  Report Type: Spontaneous
  Country: US (occurrence: US)
  Receive Date: 20171027
  Receipt Date: 20231129
  Transmission Date: 20240110
  Serious: No
  Sender: FDA-Public Use
  Company Number: US-PFIZER INC-2017427764

PATIENT
  Age: 58 Year
  Sex: Female
  Weight: 61 kg

DRUGS (15)
  1. XELJANZ XR [Suspect]
     Active Substance: TOFACITINIB CITRATE
     Indication: Rheumatoid arthritis
     Dosage: 11 MG, ONCE A DAY
     Route: 048
     Dates: start: 20171002
  2. XELJANZ XR [Suspect]
     Active Substance: TOFACITINIB CITRATE
     Dosage: 11 MG, 3X/DAY
     Route: 048
  3. XELJANZ XR [Suspect]
     Active Substance: TOFACITINIB CITRATE
     Dosage: 11 MG, 2X/DAY
     Route: 048
  4. HYDROCHLOROTHIAZIDE\LISINOPRIL [Concomitant]
     Active Substance: HYDROCHLOROTHIAZIDE\LISINOPRIL
     Dosage: UNK
  5. EFFEXOR [Concomitant]
     Active Substance: VENLAFAXINE HYDROCHLORIDE
     Dosage: UNK
  6. PREDNISONE [Concomitant]
     Active Substance: PREDNISONE
     Dosage: UNK
  7. CHOLECALCIFEROL [Concomitant]
     Active Substance: CHOLECALCIFEROL
  8. DOCUSATE [Concomitant]
     Active Substance: DOCUSATE
  9. HYDROCODONE [Concomitant]
     Active Substance: HYDROCODONE
  10. NALOXONE [Concomitant]
     Active Substance: NALOXONE
  11. VENLAFAXINE [Concomitant]
     Active Substance: VENLAFAXINE HYDROCHLORIDE
  12. ATENOLOL [Concomitant]
     Active Substance: ATENOLOL
  13. ATORVASTATIN [Concomitant]
     Active Substance: ATORVASTATIN
  14. ONDANSETRON [Concomitant]
     Active Substance: ONDANSETRON
  15. VALACYCLOVIR HYDROCHLORIDE [Concomitant]
     Active Substance: VALACYCLOVIR HYDROCHLORIDE

REACTIONS (4)
  - Therapeutic product effect incomplete [Unknown]
  - Off label use [Unknown]
  - Prescribed overdose [Unknown]
  - Headache [Unknown]
